APPROVED DRUG PRODUCT: PEPCID PRESERVATIVE FREE IN PLASTIC CONTAINER
Active Ingredient: FAMOTIDINE
Strength: 0.4MG/ML **Federal Register determination that product was not discontinued or withdrawn for safety or effectiveness reasons**
Dosage Form/Route: INJECTABLE;INJECTION
Application: N020249 | Product #001
Applicant: MERCK SHARP AND DOHME CORP
Approved: Feb 18, 1994 | RLD: Yes | RS: No | Type: DISCN